FAERS Safety Report 20520825 (Version 2)
Quarter: 2023Q4

REPORT INFORMATION
  Report Type: Spontaneous
  Country: US (occurrence: US)
  Receive Date: 20220225
  Receipt Date: 20231115
  Transmission Date: 20240110
  Serious: No
  Sender: FDA-Public Use
  Company Number: US-PFIZER INC-2021684530

PATIENT
  Age: 61 Year
  Sex: Female

DRUGS (1)
  1. METHOTREXATE SODIUM [Suspect]
     Active Substance: METHOTREXATE SODIUM
     Dosage: 1 DF, WEEKLY EVERY SATURDAY

REACTIONS (5)
  - Drug ineffective [Unknown]
  - Intentional product misuse [Unknown]
  - Swelling [Unknown]
  - Arthritis [Unknown]
  - Drug hypersensitivity [Unknown]
